FAERS Safety Report 23199241 (Version 3)
Quarter: 2024Q1

REPORT INFORMATION
  Report Type: Spontaneous
  Country: US (occurrence: US)
  Receive Date: 20231117
  Receipt Date: 20240219
  Transmission Date: 20240410
  Serious: No
  Sender: FDA-Public Use
  Company Number: US-Stemline Therapeutics, Inc.-2023ST003963

PATIENT
  Age: 74 Year
  Sex: Female

DRUGS (10)
  1. ORSERDU [Suspect]
     Active Substance: ELACESTRANT
     Indication: Product used for unknown indication
     Dosage: 345 MG, ONCE A DAY
     Route: 048
     Dates: start: 20231003
  2. ORSERDU [Suspect]
     Active Substance: ELACESTRANT
     Dosage: 345 MG, ONCE A DAY
     Route: 048
     Dates: start: 20231003
  3. ORSERDU [Suspect]
     Active Substance: ELACESTRANT
     Route: 048
     Dates: start: 20231003
  4. ONDANSETRON [Concomitant]
     Active Substance: ONDANSETRON
     Indication: Product used for unknown indication
  5. IBRANCE [Concomitant]
     Active Substance: PALBOCICLIB
     Indication: Product used for unknown indication
  6. MORPHINE [Concomitant]
     Active Substance: MORPHINE
     Indication: Pain
  7. ALPRAZOLAM [Concomitant]
     Active Substance: ALPRAZOLAM
     Indication: Anxiety
  8. MAGNESIUM [Concomitant]
     Active Substance: MAGNESIUM
     Indication: Constipation
  9. VITAMIN D [Concomitant]
     Active Substance: VITAMIN D NOS
     Indication: Constipation
  10. CANNABIDIOL\HERBALS [Concomitant]
     Active Substance: CANNABIDIOL\HERBALS
     Indication: Pain

REACTIONS (23)
  - Irritability [Unknown]
  - Adverse event [Unknown]
  - Feeding disorder [Unknown]
  - Malaise [Unknown]
  - Pain [Unknown]
  - Walking aid user [Unknown]
  - Dysstasia [Unknown]
  - Dysgeusia [Unknown]
  - Anxiety [Unknown]
  - Diplopia [Unknown]
  - Duodenogastric reflux [Unknown]
  - Sleep disorder [Unknown]
  - Dehydration [Unknown]
  - Illness [Unknown]
  - Nausea [Unknown]
  - Constipation [Unknown]
  - Headache [Unknown]
  - Vomiting [Unknown]
  - Back pain [Unknown]
  - Retching [Recovered/Resolved]
  - Dyspepsia [Unknown]
  - Fatigue [Unknown]
  - Asthenia [Unknown]

NARRATIVE: CASE EVENT DATE: 20231001
